FAERS Safety Report 5834072-4 (Version None)
Quarter: 2008Q3

REPORT INFORMATION
  Report Type: 
  Country: None (occurrence: None)
  Receive Date: 20080801
  Receipt Date: 20080801
  Transmission Date: 20090109
  Serious: Yes (Hospitalization)
  Sender: FDA-Public Use
  Company Number: None

PATIENT
  Age: 76 Year
  Sex: Male
  Weight: 87 kg

DRUGS (1)
  1. IBUPROFEN [Suspect]
     Indication: ARTHRITIS
     Dosage: 200 MG TID PO
     Route: 048
     Dates: start: 20080709, end: 20080713

REACTIONS (5)
  - ABDOMINAL PAIN UPPER [None]
  - ANAEMIA [None]
  - DUODENAL ULCER [None]
  - FAECES DISCOLOURED [None]
  - MELAENA [None]
